FAERS Safety Report 8554049-8 (Version None)
Quarter: 2012Q3

REPORT INFORMATION
  Report Type: 
  Country: None (occurrence: None)
  Receive Date: 20120731
  Receipt Date: 20120716
  Transmission Date: 20120928
  Serious: No
  Sender: FDA-Public Use
  Company Number: US-ASTRAZENECA-2011SE34592

PATIENT
  Age: 49 Year
  Sex: Female

DRUGS (4)
  1. PRILOSEC OTC [Suspect]
     Route: 048
  2. NEXIUM [Suspect]
     Route: 048
  3. NEXIUM [Suspect]
     Route: 048
  4. ZANTAC [Concomitant]

REACTIONS (9)
  - DRUG INEFFECTIVE [None]
  - WEIGHT DECREASED [None]
  - ADVERSE EVENT [None]
  - ULCER [None]
  - MALAISE [None]
  - SLEEP APNOEA SYNDROME [None]
  - WEIGHT INCREASED [None]
  - CHOKING [None]
  - DRUG DOSE OMISSION [None]
